FAERS Safety Report 18219301 (Version 1)
Quarter: 2020Q3

REPORT INFORMATION
  Report Type: Spontaneous
  Country: US (occurrence: US)
  Receive Date: 20200901
  Receipt Date: 20200901
  Transmission Date: 20201103
  Serious: Yes (Other)
  Sender: FDA-Public Use
  Company Number: US-TEVA-2020-US-1821517

PATIENT
  Age: 58 Year
  Sex: Female

DRUGS (3)
  1. LEVOFLOXACIN. [Suspect]
     Active Substance: LEVOFLOXACIN
     Indication: BRONCHITIS
     Route: 065
  2. EXEMESTANE. [Concomitant]
     Active Substance: EXEMESTANE
     Indication: INTRADUCTAL PROLIFERATIVE BREAST LESION
     Route: 065
  3. CIPROFLOXACIN. [Suspect]
     Active Substance: CIPROFLOXACIN
     Indication: BRONCHITIS
     Route: 065

REACTIONS (6)
  - Recall phenomenon [Recovered/Resolved]
  - Mammary duct ectasia [Unknown]
  - Thrombosis [Unknown]
  - Skin atrophy [Unknown]
  - Skin hypertrophy [Unknown]
  - Breast fibrosis [Unknown]
